FAERS Safety Report 9857981 (Version 4)
Quarter: 2014Q4

REPORT INFORMATION
  Report Type: Spontaneous
  Country: PL (occurrence: PL)
  Receive Date: 20140131
  Receipt Date: 20141223
  Transmission Date: 20150529
  Serious: Yes (Hospitalization)
  Sender: FDA-Public Use
  Company Number: PL-VERTEX PHARMACEUTICALS INC-2014-000458

PATIENT
  Age: 66 Year
  Sex: Female

DRUGS (3)
  1. INCIVO [Suspect]
     Active Substance: TELAPREVIR
     Indication: HEPATITIS C
     Route: 048
     Dates: start: 201311, end: 20140119
  2. COPEGUS [Suspect]
     Active Substance: RIBAVIRIN
     Indication: HEPATITIS C
     Dosage: UNK
     Route: 065
     Dates: start: 201311
  3. PEGASYS [Suspect]
     Active Substance: PEGINTERFERON ALFA-2A
     Indication: HEPATITIS C
     Dosage: UNK
     Route: 065
     Dates: start: 201311

REACTIONS (19)
  - Staphylococcal sepsis [Recovering/Resolving]
  - Palpitations [Recovered/Resolved]
  - Septic shock [Recovering/Resolving]
  - Dermatitis allergic [Recovered/Resolved]
  - Diabetes mellitus [Recovering/Resolving]
  - Cough [Recovering/Resolving]
  - Blood creatinine increased [Recovering/Resolving]
  - Pruritus [Recovering/Resolving]
  - Anal pruritus [Recovering/Resolving]
  - Pneumonia [Recovering/Resolving]
  - Renal failure [Recovering/Resolving]
  - Thrombocytopenia [Recovering/Resolving]
  - C-reactive protein decreased [Recovering/Resolving]
  - Leukopenia [Recovering/Resolving]
  - Multi-organ failure [Unknown]
  - Pancreatic insufficiency [Recovering/Resolving]
  - Nephropathy toxic [Recovering/Resolving]
  - Musculoskeletal pain [Recovering/Resolving]
  - Anaemia [Recovering/Resolving]

NARRATIVE: CASE EVENT DATE: 201312
